FAERS Safety Report 8058599-2 (Version None)
Quarter: 2012Q1

REPORT INFORMATION
  Report Type: 
  Country: None (occurrence: None)
  Receive Date: 20120120
  Receipt Date: 20120116
  Transmission Date: 20120608
  Serious: Yes (Other)
  Sender: FDA-Public Use
  Company Number: CH-JNJFOC-20120105718

PATIENT
  Sex: Male

DRUGS (5)
  1. PALIPERIDONE [Suspect]
     Indication: PRODUCT USED FOR UNKNOWN INDICATION
     Route: 030
     Dates: start: 20111116
  2. PALIPERIDONE [Suspect]
     Route: 030
     Dates: start: 20110929
  3. PALIPERIDONE [Suspect]
     Route: 030
     Dates: start: 20111214
  4. PALIPERIDONE [Suspect]
     Route: 030
     Dates: start: 20111007
  5. PALIPERIDONE [Suspect]
     Route: 030
     Dates: start: 20120112

REACTIONS (2)
  - DRUG LEVEL DECREASED [None]
  - CONDITION AGGRAVATED [None]
